FAERS Safety Report 6453307-0 (Version None)
Quarter: 2009Q4

REPORT INFORMATION
  Report Type: 
  Country: None (occurrence: None)
  Receive Date: 20091123
  Receipt Date: 20091123
  Transmission Date: 20100525
  Serious: Yes (Life-Threatening)
  Sender: FDA-Public Use
  Company Number: None

PATIENT
  Age: 51 Year
  Sex: Female
  Weight: 53.0709 kg

DRUGS (2)
  1. ISONIAZID [Suspect]
     Indication: TUBERCULOSIS TEST POSITIVE
     Dosage: 1  1 X A DAY
     Dates: start: 20091014, end: 20091120
  2. PYRIDOXINE 50 MG RUGBY LAB [Suspect]
     Indication: TUBERCULOSIS TEST POSITIVE
     Dosage: 1  1 X A DAY

REACTIONS (3)
  - HEPATIC ENZYME ABNORMAL [None]
  - PAIN IN EXTREMITY [None]
  - PYREXIA [None]
